FAERS Safety Report 8979544 (Version 1)
Quarter: 2012Q4

REPORT INFORMATION
  Report Type: 
  Country: FR (occurrence: FR)
  Receive Date: 20121221
  Receipt Date: 20121221
  Transmission Date: 20130627
  Serious: Yes (Hospitalization)
  Sender: FDA-Public Use
  Company Number: FR-SANOFI-AVENTIS-2012SA092995

PATIENT
  Age: 61 Year
  Sex: Female
  Weight: 80 kg

DRUGS (9)
  1. CORTANCYL [Suspect]
     Indication: DRUG USE FOR UNKNOWN INDICATION
     Route: 065
     Dates: start: 200604
  2. MYCOPHENOLATE MOFETIL [Suspect]
     Indication: DRUG USE FOR UNKNOWN INDICATION
     Dosage: TDD =500X2
     Route: 058
     Dates: start: 200604
  3. PLAQUENIL [Suspect]
     Indication: DRUG USE FOR UNKNOWN INDICATION
     Dosage: SJ/7=5DAY/7, TDD: 200X2/DAY
     Route: 065
     Dates: start: 200604
  4. INVESTIGATIONAL DRUG [Suspect]
     Indication: CHRONIC KIDNEY DISEASE
     Route: 058
     Dates: start: 20090217
  5. ZOPICLONE [Concomitant]
     Dosage: TDD : 1/DAY
  6. ACEBUTOLOL [Concomitant]
     Dosage: TDD : 200 1/2 DAILY
     Dates: start: 200604
  7. COAPROVEL [Concomitant]
     Dates: start: 200604
  8. LYRICA [Concomitant]
     Dosage: TDD: 100 X 2/DAY
     Dates: start: 2007
  9. FUROSEMIDE [Concomitant]
     Dosage: TDD: 20X2 /DAY
     Dates: start: 200604

REACTIONS (1)
  - Bronchial disorder [Recovered/Resolved]
